FAERS Safety Report 10034283 (Version 1)
Quarter: 2014Q1

REPORT INFORMATION
  Report Type: Spontaneous
  Country: US (occurrence: US)
  Receive Date: 20140325
  Receipt Date: 20140325
  Transmission Date: 20141002
  Serious: No
  Sender: FDA-Public Use
  Company Number: US-ROXANE LABORATORIES, INC.-2014-RO-00443RO

PATIENT
  Sex: Male

DRUGS (1)
  1. PREDNISONE [Suspect]
     Indication: INCLUSION BODY MYOSITIS
     Route: 048

REACTIONS (9)
  - Sensation of heaviness [Unknown]
  - Pain in extremity [Unknown]
  - Chills [Unknown]
  - Feeling hot [Unknown]
  - Pain [Unknown]
  - Asthenia [Unknown]
  - Fatigue [Unknown]
  - Hypertension [Not Recovered/Not Resolved]
  - Oedema peripheral [Unknown]
